FAERS Safety Report 11696905 (Version 2)
Quarter: 2015Q4

REPORT INFORMATION
  Report Type: Spontaneous
  Country: CA (occurrence: CA)
  Receive Date: 20151104
  Receipt Date: 20151106
  Transmission Date: 20160304
  Serious: Yes (Hospitalization, Other)
  Sender: FDA-Public Use
  Company Number: CA-JNJFOC-20151020967

PATIENT
  Sex: Female
  Weight: 52.16 kg

DRUGS (4)
  1. TRI-CYCLEN LO [Suspect]
     Active Substance: ETHINYL ESTRADIOL\NORGESTIMATE
     Indication: CONTRACEPTION
     Route: 048
     Dates: start: 201405, end: 20151015
  2. LORAZEPAM. [Concomitant]
     Active Substance: LORAZEPAM
     Route: 065
  3. ABILIFY [Concomitant]
     Active Substance: ARIPIPRAZOLE
     Route: 065
  4. SEROQUEL [Concomitant]
     Active Substance: QUETIAPINE FUMARATE
     Route: 065

REACTIONS (6)
  - Dyspnoea [Not Recovered/Not Resolved]
  - Abasia [Not Recovered/Not Resolved]
  - Weight increased [Not Recovered/Not Resolved]
  - Supraventricular tachycardia [Recovered/Resolved]
  - Arthralgia [Unknown]
  - Impaired work ability [Unknown]

NARRATIVE: CASE EVENT DATE: 2014
